FAERS Safety Report 13663905 (Version 9)
Quarter: 2019Q2

REPORT INFORMATION
  Report Type: Spontaneous
  Country: US (occurrence: US)
  Receive Date: 20170619
  Receipt Date: 20190404
  Transmission Date: 20190711
  Serious: No
  Sender: FDA-Public Use
  Company Number: US-PFIZER INC-2017191066

PATIENT
  Age: 69 Year
  Sex: Female
  Weight: 83.9 kg

DRUGS (16)
  1. GENOTROPIN [Suspect]
     Active Substance: SOMATROPIN
     Dosage: 0.05 MG, 1X/DAY
  2. GENOTROPIN [Suspect]
     Active Substance: SOMATROPIN
     Dosage: 0.4 MG, DAILY
     Dates: start: 20170503
  3. LIOTHYRONINE [Concomitant]
     Active Substance: LIOTHYRONINE
     Indication: THYROID DISORDER
     Dosage: 5 UG, 2X/DAY
     Route: 048
     Dates: start: 2017
  4. AMLODIPINE BESILATE [Concomitant]
     Active Substance: AMLODIPINE BESYLATE
     Dosage: 10 MG, 1X/DAY
     Route: 048
  5. METFORMIN [Concomitant]
     Active Substance: METFORMIN HYDROCHLORIDE
     Indication: BLOOD GLUCOSE INCREASED
     Dosage: 1000 MG, 2X/DAY
     Route: 048
  6. ATENOLOL. [Concomitant]
     Active Substance: ATENOLOL
     Indication: CARDIAC DISORDER
     Dosage: 50 MG, 1X/DAY
     Route: 048
  7. GENOTROPIN [Suspect]
     Active Substance: SOMATROPIN
     Indication: PITUITARY-DEPENDENT CUSHING^S SYNDROME
     Dosage: 5 MG, UNK
  8. GENOTROPIN [Suspect]
     Active Substance: SOMATROPIN
     Dosage: 5 MG, UNK
  9. OMEPRAZOLE. [Concomitant]
     Active Substance: OMEPRAZOLE
     Indication: DYSPEPSIA
     Dosage: 20 MG, 1X/DAY
     Route: 048
  10. GENOTROPIN [Suspect]
     Active Substance: SOMATROPIN
     Dosage: UNK
  11. GENOTROPIN [Suspect]
     Active Substance: SOMATROPIN
     Indication: HYPOPITUITARISM
     Dosage: 5 MG, UNK
  12. GENOTROPIN [Suspect]
     Active Substance: SOMATROPIN
     Indication: GROWTH HORMONE DEFICIENCY
     Dosage: 0.5 MG, 1X/DAY
  13. SYNTHROID [Concomitant]
     Active Substance: LEVOTHYROXINE SODIUM
     Indication: THYROID DISORDER
     Dosage: 0.112 UG, 1X/DAY
     Route: 048
  14. LOSARTAN. [Concomitant]
     Active Substance: LOSARTAN
     Indication: CARDIAC DISORDER
     Dosage: 100 MG, 1X/DAY
     Route: 048
  15. HYDROCORTISONE. [Concomitant]
     Active Substance: HYDROCORTISONE
     Indication: HYPOPITUITARISM
     Dosage: 30 MG, DAILY, (20 MG TABLET IN THE MORNING AND 10 MG TABLET IN THE AFTERNOON)
     Dates: start: 1993
  16. ESCITALOPRAM [Concomitant]
     Active Substance: ESCITALOPRAM OXALATE
     Indication: ANXIETY
     Dosage: 10 MG, 1X/DAY (AT NIGHT)
     Route: 048
     Dates: start: 2017

REACTIONS (14)
  - Product dose omission [Recovered/Resolved]
  - Impaired quality of life [Recovered/Resolved]
  - Incorrect dose administered [Unknown]
  - Lethargy [Unknown]
  - Glycosylated haemoglobin increased [Unknown]
  - Blood glucose increased [Unknown]
  - Anion gap increased [Unknown]
  - Malaise [Unknown]
  - Blood thyroid stimulating hormone decreased [Unknown]
  - Balance disorder [Unknown]
  - Insulin-like growth factor increased [Unknown]
  - Pain [Unknown]
  - Amnesia [Unknown]
  - Asthenia [Unknown]

NARRATIVE: CASE EVENT DATE: 201702
